FAERS Safety Report 11254568 (Version 1)
Quarter: 2015Q3

REPORT INFORMATION
  Report Type: Spontaneous
  Country: US (occurrence: US)
  Receive Date: 20150709
  Receipt Date: 20150709
  Transmission Date: 20151125
  Serious: Yes (Hospitalization)
  Sender: FDA-Public Use
  Company Number: US-AUROBINDO-AUR-APL-2015-04679

PATIENT
  Age: 72 Year
  Sex: Female
  Weight: 71.8 kg

DRUGS (1)
  1. METOPROLOL 50MG [Suspect]
     Active Substance: METOPROLOL
     Indication: HYPERTENSION
     Dosage: 50 MG, TWO TIMES A DAY
     Route: 048
     Dates: start: 201504, end: 20150511

REACTIONS (2)
  - Bradycardia [Recovered/Resolved]
  - Orthostatic hypotension [Recovered/Resolved]

NARRATIVE: CASE EVENT DATE: 20150511
